FAERS Safety Report 5412581-X (Version None)
Quarter: 2007Q3

REPORT INFORMATION
  Report Type: 
  Country: None (occurrence: None)
  Receive Date: 20070713
  Receipt Date: 20070306
  Transmission Date: 20080115
  Serious: Yes (Hospitalization, Other)
  Sender: FDA-Public Use
  Company Number: US-JNJFOC-20060905577

PATIENT
  Age: 27 Year
  Sex: Female
  Weight: 87.0906 kg

DRUGS (2)
  1. ORTHO EVRA [Suspect]
     Indication: AMENORRHOEA
     Dosage: TRANSDERMAL
     Route: 062
     Dates: start: 20030301, end: 20060121
  2. ORTHO EVRA [Suspect]
     Indication: CONTRACEPTION
     Dosage: TRANSDERMAL
     Route: 062
     Dates: start: 20030301, end: 20060121

REACTIONS (2)
  - OFF LABEL USE [None]
  - PULMONARY EMBOLISM [None]
